FAERS Safety Report 5221089-6 (Version None)
Quarter: 2007Q1

REPORT INFORMATION
  Report Type: 
  Country: None (occurrence: None)
  Receive Date: 20070123
  Receipt Date: 20070108
  Transmission Date: 20070707
  Serious: Yes (Death)
  Sender: FDA-Public Use
  Company Number: 235175

PATIENT
  Age: 59 Year
  Sex: Male

DRUGS (3)
  1. AVASTIN [Suspect]
     Indication: COLON CANCER METASTATIC
     Dosage: 7.5 MG MG/KG, Q3W, INTRAVENOUS
     Route: 042
     Dates: start: 20060915, end: 20061208
  2. IRINOTECAN HCL [Suspect]
     Indication: COLON CANCER METASTATIC
     Dosage: 200 MG/M2, Q3W, INTRAVENOUS
     Route: 042
     Dates: start: 20060915, end: 20061208
  3. CAPECITABINE (CAPECETABINE) [Suspect]
     Indication: COLON CANCER METASTATIC
     Dosage: 850 MG/M2, BID, ORAL
     Route: 048
     Dates: start: 20060915, end: 20061220

REACTIONS (2)
  - LOSS OF CONSCIOUSNESS [None]
  - PULSE ABSENT [None]
